FAERS Safety Report 24463166 (Version 1)
Quarter: 2024Q4

REPORT INFORMATION
  Report Type: Report from Study
  Country: US (occurrence: US)
  Receive Date: 20241018
  Receipt Date: 20241018
  Transmission Date: 20250114
  Serious: No
  Sender: ROCHE
  Company Number: US-ROCHE-2521590

PATIENT
  Age: 43 Year
  Sex: Female

DRUGS (9)
  1. XOLAIR [Suspect]
     Active Substance: OMALIZUMAB
     Indication: Urticaria thermal
     Dosage: STRENGTH: 150MG/ML; DATE OF SERVICE: 07/FEB/2024
     Route: 058
  2. XOLAIR [Suspect]
     Active Substance: OMALIZUMAB
     Indication: Idiopathic urticaria
  3. ZYRTEC [Concomitant]
     Active Substance: CETIRIZINE HYDROCHLORIDE
  4. BENADRYL [Concomitant]
     Active Substance: DIPHENHYDRAMINE HYDROCHLORIDE
  5. PREDNISOLONE [Concomitant]
     Active Substance: PREDNISOLONE
  6. FAMOTIDINE [Concomitant]
     Active Substance: FAMOTIDINE
  7. TYLENOL [Concomitant]
     Active Substance: ACETAMINOPHEN
  8. EPIPEN [Concomitant]
     Active Substance: EPINEPHRINE
  9. IBUPROFEN [Concomitant]
     Active Substance: IBUPROFEN

REACTIONS (2)
  - Off label use [Unknown]
  - No adverse event [Unknown]
